FAERS Safety Report 5730419-8 (Version None)
Quarter: 2008Q2

REPORT INFORMATION
  Report Type: 
  Country: None (occurrence: None)
  Receive Date: 20080505
  Receipt Date: 20080505
  Transmission Date: 20081010
  Serious: Yes (Hospitalization)
  Sender: FDA-Public Use
  Company Number: None

PATIENT
  Age: 72 Year
  Sex: Female

DRUGS (7)
  1. VECURONIUM BROMIDE [Suspect]
     Indication: MECHANICAL VENTILATION
     Dates: start: 20070105, end: 20070112
  2. SOLU-MEDROL [Suspect]
     Indication: ANAPHYLACTIC REACTION
     Dosage: 40 MG EVERY 6 HOURS IV
     Route: 042
     Dates: start: 20070105, end: 20070119
  3. BENADRYL [Concomitant]
  4. VASOTEC [Concomitant]
  5. ATIVAN [Concomitant]
  6. LABETALOL HCL [Concomitant]
  7. LOPRESSOR [Concomitant]

REACTIONS (4)
  - AXONAL NEUROPATHY [None]
  - NEUROPATHY PERIPHERAL [None]
  - PARALYSIS [None]
  - POST PROCEDURAL COMPLICATION [None]
